FAERS Safety Report 10017715 (Version 2)
Quarter: 2014Q1

REPORT INFORMATION
  Report Type: Spontaneous
  Country: US (occurrence: US)
  Receive Date: 20140318
  Receipt Date: 20140318
  Transmission Date: 20141002
  Serious: Yes (Other)
  Sender: FDA-Public Use
  Company Number: US-BRISTOL-MYERS SQUIBB COMPANY-17454455

PATIENT
  Age: 48 Year
  Sex: Male
  Weight: 109.97 kg

DRUGS (16)
  1. ERBITUX [Suspect]
     Indication: HEAD AND NECK CANCER
     Dosage: INITIAL DOSE 900 MG
     Route: 042
     Dates: start: 20130204, end: 20130325
  2. ACETAMINOPHEN + HYDROCODONE [Concomitant]
     Dosage: 1 DF: 500/5 MG?^ELIXIR^
  3. LORTAB [Concomitant]
     Dosage: ELIXIR 7.5MG-500MG Q4-6H MIXED WITH ACETAMINOPHEN/HYDROCODONE 5CC ELIXIR
  4. LOTENSIN [Concomitant]
     Dosage: TABS
  5. DECADRON [Concomitant]
  6. HYDROCHLOROTHIAZIDE [Concomitant]
  7. IBUPROFEN [Concomitant]
     Dosage: PRN
  8. ATIVAN [Concomitant]
     Dosage: PRN
  9. REMERON [Concomitant]
  10. PROTONIX [Concomitant]
  11. COMPAZINE [Concomitant]
     Dosage: PRN
  12. SUDAFED [Concomitant]
  13. CARAFATE [Concomitant]
     Dosage: BEFORE MEALS AT BED TIME
     Route: 048
  14. COUMADIN [Concomitant]
  15. ZOFRAN [Concomitant]
  16. FENTANYL PATCH [Concomitant]

REACTIONS (1)
  - Rash [Not Recovered/Not Resolved]
